FAERS Safety Report 8958798 (Version 1)
Quarter: 2012Q4

REPORT INFORMATION
  Report Type: 
  Country: PT (occurrence: PT)
  Receive Date: 20121212
  Receipt Date: 20121212
  Transmission Date: 20130627
  Serious: Yes (Disabling)
  Sender: FDA-Public Use
  Company Number: PHHY2012PT113668

PATIENT
  Sex: Female
  Weight: 65 kg

DRUGS (7)
  1. AMOXICILLIN\CLAVULANIC ACID [Suspect]
     Indication: OROPHARYNGEAL PAIN
     Route: 048
  2. NIMESULIDE [Suspect]
     Indication: OROPHARYNGEAL PAIN
     Dosage: 100 mg, BID
     Route: 048
  3. ZYRTEC [Concomitant]
     Indication: OROPHARYNGEAL PAIN
     Dosage: 10 mg
  4. ATACAND [Concomitant]
     Indication: HYPERTENSION
     Dosage: 16 mg, daily
  5. SEDOXIL [Concomitant]
     Indication: ANXIETY
     Dosage: 1 mg
  6. PROTIADENE [Concomitant]
     Indication: DEPRESSION
     Dosage: 75 mg, daily
  7. CODIPRONT [Concomitant]

REACTIONS (8)
  - Urinary retention [Recovered/Resolved]
  - Chromaturia [Recovered/Resolved]
  - Decreased appetite [Recovered/Resolved]
  - Mucosal ulceration [Recovered/Resolved]
  - Condition aggravated [Recovered/Resolved]
  - Oedema [Recovered/Resolved]
  - Localised oedema [Recovered/Resolved]
  - Vomiting [Recovered/Resolved]
